FAERS Safety Report 24693215 (Version 1)
Quarter: 2024Q4

REPORT INFORMATION
  Report Type: Spontaneous
  Country: AR (occurrence: AR)
  Receive Date: 20241203
  Receipt Date: 20241203
  Transmission Date: 20250114
  Serious: Yes (Other)
  Sender: ANI
  Company Number: AR-ANIPHARMA-2024-AR-000018

PATIENT
  Age: 15 Year
  Sex: Male
  Weight: 40 kg

DRUGS (6)
  1. VALPROIC ACID [Suspect]
     Active Substance: VALPROIC ACID
     Indication: Epilepsy
  2. RUFINAMIDE [Concomitant]
     Active Substance: RUFINAMIDE
  3. Sultiamine [Concomitant]
  4. RISPERIDONE [Concomitant]
     Active Substance: RISPERIDONE
  5. ARIPIPRAZOLE [Concomitant]
     Active Substance: ARIPIPRAZOLE
  6. CLONAZEPAM [Concomitant]
     Active Substance: CLONAZEPAM

REACTIONS (1)
  - Colitis microscopic [Unknown]
